FAERS Safety Report 14855419 (Version 1)
Quarter: 2018Q2

REPORT INFORMATION
  Report Type: Spontaneous
  Country: US (occurrence: US)
  Receive Date: 20180507
  Receipt Date: 20180507
  Transmission Date: 20180711
  Serious: No
  Sender: FDA-Public Use
  Company Number: US-ROCHE-1979423

PATIENT
  Sex: Female

DRUGS (3)
  1. ESBRIET [Suspect]
     Active Substance: PIRFENIDONE
     Indication: PULMONARY FIBROSIS
     Dosage: 1 PILL 3 TIMES A DAY ;ONGOING: NO
     Route: 048
     Dates: start: 20160108, end: 20160115
  2. OXYGEN. [Concomitant]
     Active Substance: OXYGEN
     Dosage: FULL TIME ;ONGOING: YES
     Route: 065
  3. PREDNISONE. [Concomitant]
     Active Substance: PREDNISONE
     Dosage: YES
     Route: 065

REACTIONS (1)
  - Nausea [Unknown]
